FAERS Safety Report 11957573 (Version 1)
Quarter: 2016Q1

REPORT INFORMATION
  Report Type: Spontaneous
  Country: TR (occurrence: TR)
  Receive Date: 20160126
  Receipt Date: 20160126
  Transmission Date: 20160526
  Serious: Yes (Other)
  Sender: FDA-Public Use
  Company Number: TR-BAXTER-2016BAX002814

PATIENT
  Age: 63 Year
  Sex: Female

DRUGS (14)
  1. UROMITEXAN 400 MG/4 ML. (MESNA) [Suspect]
     Active Substance: MESNA
     Indication: PRIMITIVE NEUROECTODERMAL TUMOUR
     Dosage: 3 CYCLES
     Route: 065
  2. HOLOXAN 2 G IV [Suspect]
     Active Substance: IFOSFAMIDE
     Indication: PRIMITIVE NEUROECTODERMAL TUMOUR
     Dosage: 3 CYCLES
     Route: 065
  3. HOLOXAN 2 G IV [Suspect]
     Active Substance: IFOSFAMIDE
     Indication: UTERINE NEOPLASM
  4. VINCRISTINE [Suspect]
     Active Substance: VINCRISTINE
     Indication: UTERINE NEOPLASM
  5. DACTINOMYCIN [Suspect]
     Active Substance: DACTINOMYCIN
     Indication: UTERINE NEOPLASM
  6. G-CSF [Suspect]
     Active Substance: GRANULOCYTE COLONY-STIMULATING FACTOR NOS
     Indication: UTERINE NEOPLASM
  7. ADRIAMYCIN [Suspect]
     Active Substance: DOXORUBICIN HYDROCHLORIDE
     Indication: UTERINE NEOPLASM
  8. VINCRISTINE [Suspect]
     Active Substance: VINCRISTINE
     Indication: PRIMITIVE NEUROECTODERMAL TUMOUR
     Dosage: 3 CYCLES
     Route: 065
  9. UROMITEXAN 400 MG/4 ML. (MESNA) [Suspect]
     Active Substance: MESNA
     Indication: UTERINE NEOPLASM
  10. ADRIAMYCIN [Suspect]
     Active Substance: DOXORUBICIN HYDROCHLORIDE
     Indication: PRIMITIVE NEUROECTODERMAL TUMOUR
     Dosage: 3 CYCLES
     Route: 065
  11. ETOPOSIDE. [Suspect]
     Active Substance: ETOPOSIDE
     Indication: UTERINE NEOPLASM
  12. G-CSF [Suspect]
     Active Substance: GRANULOCYTE COLONY-STIMULATING FACTOR NOS
     Indication: PRIMITIVE NEUROECTODERMAL TUMOUR
     Dosage: 3 CYCLES
     Route: 065
  13. DACTINOMYCIN [Suspect]
     Active Substance: DACTINOMYCIN
     Indication: PRIMITIVE NEUROECTODERMAL TUMOUR
     Dosage: 3 CYCLES
     Route: 065
  14. ETOPOSIDE. [Suspect]
     Active Substance: ETOPOSIDE
     Indication: PRIMITIVE NEUROECTODERMAL TUMOUR
     Dosage: 3 CYCLES
     Route: 065

REACTIONS (3)
  - Renal failure [Unknown]
  - Pyrexia [Unknown]
  - Granulocytopenia [Unknown]
